FAERS Safety Report 14247785 (Version 1)
Quarter: 2017Q4

REPORT INFORMATION
  Report Type: Spontaneous
  Country: GB (occurrence: GB)
  Receive Date: 20171204
  Receipt Date: 20171204
  Transmission Date: 20180321
  Serious: Yes (Other)
  Sender: FDA-Public Use
  Company Number: GB-ASTRAZENECA-2017SF22203

PATIENT
  Age: 46 Year
  Sex: Male

DRUGS (1)
  1. QUETIAPINE. [Suspect]
     Active Substance: QUETIAPINE
     Indication: INSOMNIA
     Route: 048

REACTIONS (18)
  - Hepatic enzyme increased [Unknown]
  - Atrophy [Unknown]
  - Asthenia [Unknown]
  - Off label use [Unknown]
  - Metamorphopsia [Unknown]
  - Cerebral atrophy [Unknown]
  - Low density lipoprotein increased [Unknown]
  - Fatigue [Unknown]
  - Metabolic syndrome [Unknown]
  - Blood osmolarity increased [Unknown]
  - Red blood cell count decreased [Unknown]
  - Food craving [Unknown]
  - Oropharyngeal pain [Unknown]
  - Nasal congestion [Unknown]
  - Extrasystoles [Unknown]
  - Haemoglobin decreased [Unknown]
  - High density lipoprotein decreased [Unknown]
  - Blood triglycerides increased [Unknown]
